FAERS Safety Report 9133359 (Version 1)
Quarter: 2013Q1

REPORT INFORMATION
  Report Type: Spontaneous
  Country: US (occurrence: US)
  Receive Date: 20130301
  Receipt Date: 20130301
  Transmission Date: 20140127
  Serious: Yes (Hospitalization)
  Sender: FDA-Public Use
  Company Number: US-ABBOTT-10P-163-0801840-00

PATIENT
  Age: 70 Year
  Sex: Male
  Weight: 75 kg

DRUGS (3)
  1. ANDROGEL [Suspect]
     Indication: BLOOD TESTOSTERONE DECREASED
     Route: 062
     Dates: start: 200908, end: 20100424
  2. ANDROGEL [Suspect]
     Route: 062
     Dates: start: 20100424
  3. ASPIRINE [Concomitant]
     Indication: PROPHYLAXIS
     Route: 048
     Dates: start: 2007, end: 20101102

REACTIONS (1)
  - Gastrointestinal haemorrhage [Recovered/Resolved]
